FAERS Safety Report 8398258-X (Version None)
Quarter: 2012Q2

REPORT INFORMATION
  Report Type: 
  Country: None (occurrence: None)
  Receive Date: 20120531
  Receipt Date: 20120523
  Transmission Date: 20120825
  Serious: Yes (Hospitalization, Other)
  Sender: FDA-Public Use
  Company Number: AU-PFIZER INC-2012127373

PATIENT
  Age: 55 Year
  Sex: Male

DRUGS (3)
  1. LYRICA [Suspect]
     Indication: NEURALGIA
     Dosage: 75 MG, 2X/DAY
     Dates: start: 20110105
  2. LYRICA [Suspect]
     Indication: RADICULOPATHY
     Dosage: 150 MG, 2X/DAY
  3. LYRICA [Suspect]
     Indication: BACK PAIN

REACTIONS (3)
  - ANGER [None]
  - INTENTIONAL SELF-INJURY [None]
  - PSYCHOTIC DISORDER [None]
